FAERS Safety Report 22342208 (Version 1)
Quarter: 2023Q2

REPORT INFORMATION
  Report Type: Spontaneous
  Country: US (occurrence: US)
  Receive Date: 20230519
  Receipt Date: 20230519
  Transmission Date: 20230721
  Serious: No
  Sender: FDA-Public Use
  Company Number: US-APOTEX-2022AP014917

PATIENT
  Sex: Male
  Weight: 77.11 kg

DRUGS (12)
  1. DOXYCYCLINE [Suspect]
     Active Substance: DOXYCYCLINE
     Indication: Lyme disease
     Dosage: UNK
     Route: 065
  2. CEFUROXIME AXETIL [Suspect]
     Active Substance: CEFUROXIME AXETIL
     Indication: Lyme disease
     Dosage: 10 DOSAGE FORM, QD
     Route: 048
  3. CEFUROXIME AXETIL [Suspect]
     Active Substance: CEFUROXIME AXETIL
     Indication: Cat scratch disease
     Dosage: 2000 MILLIGRAM, QD
     Route: 048
  4. QUESTRAN [Concomitant]
     Active Substance: CHOLESTYRAMINE
     Indication: Deficiency of bile secretion
     Dosage: UNK
     Route: 065
     Dates: start: 1983
  5. ATORVASTATIN [Concomitant]
     Active Substance: ATORVASTATIN
     Indication: Blood cholesterol increased
     Dosage: 1 DOSAGE FORM, QD, STARTED AROUND 2014-2015
     Route: 065
  6. OLMESARTAN [Concomitant]
     Active Substance: OLMESARTAN
     Indication: Blood pressure measurement
     Dosage: 10 MILLIGRAM
     Route: 065
  7. LEVOTHYROXINE [Concomitant]
     Active Substance: LEVOTHYROXINE
     Indication: Hypothyroidism
     Dosage: 87 MICROGRAM, BID
     Route: 065
  8. LEVOTHYROXINE [Concomitant]
     Active Substance: LEVOTHYROXINE
     Dosage: 112 MICROGRAM, QD
     Route: 065
  9. NAPROSYN [Concomitant]
     Active Substance: NAPROXEN
     Indication: Pain
     Dosage: 500 MILLIGRAM, PRN
     Route: 065
  10. METHSCOPOLAMINE BROMIDE [Concomitant]
     Active Substance: METHSCOPOLAMINE BROMIDE
     Indication: Crohn^s disease
     Dosage: 5 MILLIGRAM, BID
     Route: 065
  11. AMOXICILLIN [Concomitant]
     Active Substance: AMOXICILLIN
     Indication: Lyme disease
     Dosage: 875 MILLIGRAM, TID
     Route: 065
  12. AZITHROMYCIN [Concomitant]
     Active Substance: AZITHROMYCIN
     Indication: Lyme disease
     Dosage: 250 MILLIGRAM, BID
     Route: 065

REACTIONS (4)
  - Pharyngeal ulceration [Unknown]
  - Ulcer [Unknown]
  - Mouth ulceration [Unknown]
  - Drug ineffective [Unknown]
